FAERS Safety Report 8067585-8 (Version None)
Quarter: 2012Q1

REPORT INFORMATION
  Report Type: 
  Country: None (occurrence: None)
  Receive Date: 20120124
  Receipt Date: 20120117
  Transmission Date: 20120608
  Serious: Yes (Other)
  Sender: FDA-Public Use
  Company Number: US-ASTRAZENECA-2011SE74119

PATIENT
  Age: 48 Year
  Sex: Male

DRUGS (1)
  1. SEROQUEL [Suspect]
     Route: 048

REACTIONS (6)
  - DRUG DOSE OMISSION [None]
  - OBSESSIVE-COMPULSIVE DISORDER [None]
  - HOMICIDAL IDEATION [None]
  - FEELING OF DESPAIR [None]
  - SUICIDAL IDEATION [None]
  - AGGRESSION [None]
